FAERS Safety Report 7964117-7 (Version None)
Quarter: 2011Q4

REPORT INFORMATION
  Report Type: 
  Country: None (occurrence: None)
  Receive Date: 20111208
  Receipt Date: 20111129
  Transmission Date: 20120403
  Serious: Yes (Other)
  Sender: FDA-Public Use
  Company Number: CA-SP-2011-04549

PATIENT
  Age: 85 Year
  Sex: Male

DRUGS (1)
  1. TUBERSOL [Suspect]
     Indication: TUBERCULIN TEST
     Dosage: NOT REPORTED
     Route: 050
     Dates: start: 20100127, end: 20100127

REACTIONS (3)
  - OEDEMA PERIPHERAL [None]
  - ERYTHEMA [None]
  - INJECTION SITE DISCOLOURATION [None]
